FAERS Safety Report 5755314-X (Version None)
Quarter: 2008Q2

REPORT INFORMATION
  Report Type: 
  Country: None (occurrence: None)
  Receive Date: 20080529
  Receipt Date: 20080529
  Transmission Date: 20081010
  Serious: No
  Sender: FDA-Public Use
  Company Number: None

PATIENT
  Age: 58 Year
  Sex: Female
  Weight: 68.4932 kg

DRUGS (1)
  1. RECLAST [Suspect]
     Indication: OSTEOPOROSIS
     Dosage: 5MG/100 ML FOR INFUSION
     Dates: start: 20080430, end: 20080430

REACTIONS (3)
  - IMPAIRED WORK ABILITY [None]
  - INFLUENZA [None]
  - INFUSION RELATED REACTION [None]
